FAERS Safety Report 9491642 (Version 2)
Quarter: 2013Q3

REPORT INFORMATION
  Report Type: Spontaneous
  Country: DE (occurrence: DE)
  Receive Date: 20130830
  Receipt Date: 20130830
  Transmission Date: 20140515
  Serious: Yes (Life-Threatening, Other)
  Sender: FDA-Public Use
  Company Number: DE-PFIZER INC-2013233774

PATIENT
  Age: 71 Year
  Sex: Male
  Weight: 105 kg

DRUGS (4)
  1. BOSULIF [Suspect]
     Indication: CHRONIC MYELOID LEUKAEMIA
     Dosage: 500 MG, DAILY
     Route: 048
     Dates: start: 20130620, end: 20130730
  2. TORASEMIDE [Concomitant]
     Dosage: (10) 1-1-0
  3. IBUPROFEN [Concomitant]
     Dosage: (600),UNK
  4. ZOPICLONE [Concomitant]
     Dosage: (7.5), 0-0-0-1

REACTIONS (4)
  - Pulmonary hypertension [Not Recovered/Not Resolved]
  - Right ventricular failure [Not Recovered/Not Resolved]
  - Pericardial effusion [Not Recovered/Not Resolved]
  - Pleural effusion [Not Recovered/Not Resolved]
